FAERS Safety Report 8070870-7 (Version None)
Quarter: 2012Q1

REPORT INFORMATION
  Report Type: 
  Country: None (occurrence: None)
  Receive Date: 20120125
  Receipt Date: 20120118
  Transmission Date: 20120608
  Serious: Yes (Hospitalization)
  Sender: FDA-Public Use
  Company Number: PHHY2012SI005297

PATIENT
  Age: 55 Year
  Sex: Male

DRUGS (13)
  1. CLONAZEPAM [Concomitant]
  2. LORAZEPAM [Suspect]
     Dosage: 2.5 MG, TID
  3. LORAZEPAM [Suspect]
     Indication: SCHIZOPHRENIA, PARANOID TYPE
     Dosage: 5 MG, TID
  4. PROMAZINE HYDROCHLORIDE [Concomitant]
     Dosage: 50 MG, TID
  5. PROMAZINE HYDROCHLORIDE [Concomitant]
     Dosage: 100 MG, TID
  6. BROMOCRIPTINE MESYLATE [Concomitant]
     Dosage: 5 MG, BID
  7. OLANZAPINE [Concomitant]
  8. SULPIRIDE [Concomitant]
     Dosage: 400 MG, TID
  9. HALOPERIDOL [Concomitant]
     Dosage: 10 MG, TID
  10. DIAZEPAM [Concomitant]
  11. BIPERIDEN HYDROCHLORIDE TAB [Concomitant]
  12. CARBAMAZEPINE [Concomitant]
  13. RISPERIDONE [Suspect]
     Dosage: 1 MG, BID

REACTIONS (16)
  - PYREXIA [None]
  - TREMOR [None]
  - SALIVARY HYPERSECRETION [None]
  - DELUSION [None]
  - DYSPHAGIA [None]
  - URINARY RETENTION [None]
  - MOVEMENT DISORDER [None]
  - DYSTONIA [None]
  - PLEUROTHOTONUS [None]
  - POSTURE ABNORMAL [None]
  - ANXIETY [None]
  - UNRESPONSIVE TO STIMULI [None]
  - DISORIENTATION [None]
  - SUICIDE ATTEMPT [None]
  - HYPERTONIA [None]
  - NEUROLEPTIC MALIGNANT SYNDROME [None]
